FAERS Safety Report 9032796 (Version 1)
Quarter: 2013Q1

REPORT INFORMATION
  Report Type: Spontaneous
  Country: US (occurrence: None)
  Receive Date: 20130110
  Receipt Date: 20130110
  Transmission Date: 20140127
  Serious: Yes (Other)
  Sender: FDA-Public Use
  Company Number: 2013SA000230

PATIENT
  Sex: Female

DRUGS (1)
  1. GOLD BOND MEDICATED [Suspect]
     Route: 061
     Dates: start: 201212, end: 201212

REACTIONS (1)
  - Application site burn [None]
